FAERS Safety Report 7521903-5 (Version None)
Quarter: 2011Q2

REPORT INFORMATION
  Report Type: 
  Country: None (occurrence: None)
  Receive Date: 20110603
  Receipt Date: 20110520
  Transmission Date: 20111010
  Serious: Yes (Hospitalization, Other)
  Sender: FDA-Public Use
  Company Number: DK-RANBAXY-2011RR-44948

PATIENT
  Sex: Male

DRUGS (2)
  1. OPTIRAY 300 [Suspect]
     Indication: COMPUTERISED TOMOGRAM
     Dosage: UNK
     Dates: start: 20100804
  2. RAMIPRIL [Suspect]

REACTIONS (3)
  - RENAL FAILURE [None]
  - EMOTIONAL DISTRESS [None]
  - BLADDER CATHETERISATION [None]
